FAERS Safety Report 7240679-2 (Version None)
Quarter: 2011Q1

REPORT INFORMATION
  Report Type: 
  Country: None (occurrence: None)
  Receive Date: 20110124
  Receipt Date: 20100514
  Transmission Date: 20110831
  Serious: No
  Sender: FDA-Public Use
  Company Number: US-KINGPHARMUSA00001-K201000612

PATIENT
  Age: 31 Year
  Sex: Female
  Weight: 71.655 kg

DRUGS (1)
  1. EPIPEN [Suspect]
     Indication: URTICARIA
     Dosage: 0.3 MG, SINGLE

REACTIONS (2)
  - BURNING SENSATION [None]
  - ERYTHEMA [None]
